FAERS Safety Report 14443351 (Version 1)
Quarter: 2018Q1

REPORT INFORMATION
  Report Type: Spontaneous
  Country: IE (occurrence: IE)
  Receive Date: 20180125
  Receipt Date: 20180125
  Transmission Date: 20180509
  Serious: Yes (Death, Hospitalization, Other)
  Sender: FDA-Public Use
  Company Number: IE-B.I. PHARMACEUTICALS,INC./RIDGEFIELD-2018-12-000238

PATIENT
  Age: 54 Year
  Sex: Male

DRUGS (1)
  1. PRADAXA [Suspect]
     Active Substance: DABIGATRAN ETEXILATE MESYLATE
     Indication: THROMBOSIS PROPHYLAXIS
     Route: 065

REACTIONS (29)
  - Renal arteriosclerosis [Unknown]
  - Hepatic steatosis [Unknown]
  - Renal haemorrhage [Unknown]
  - Hypotension [Unknown]
  - Dehydration [Unknown]
  - Upper gastrointestinal haemorrhage [Unknown]
  - Acute kidney injury [Unknown]
  - Diarrhoea [Unknown]
  - Melaena [Unknown]
  - Cardiac failure congestive [Fatal]
  - Gastritis [Unknown]
  - Hyperkalaemia [Unknown]
  - Contusion [Unknown]
  - Congestive cardiomyopathy [Fatal]
  - International normalised ratio increased [Unknown]
  - Coagulopathy [Unknown]
  - Ascites [Unknown]
  - Renal infarct [Fatal]
  - Pneumonia aspiration [Fatal]
  - Tachycardia [Unknown]
  - Osteoporosis [Unknown]
  - Pleural effusion [Unknown]
  - Metabolic acidosis [Unknown]
  - Hypoxic-ischaemic encephalopathy [Unknown]
  - Gastrointestinal haemorrhage [Fatal]
  - Sepsis [Unknown]
  - Hypothermia [Unknown]
  - Circulatory collapse [Unknown]
  - Fall [Unknown]
